FAERS Safety Report 5371941-6 (Version None)
Quarter: 2007Q2

REPORT INFORMATION
  Report Type: 
  Country: None (occurrence: None)
  Receive Date: 20070625
  Receipt Date: 20070611
  Transmission Date: 20071010
  Serious: Yes (Hospitalization, Other)
  Sender: FDA-Public Use
  Company Number: 100#08#2007-02163

PATIENT
  Age: 72 Year
  Sex: Male

DRUGS (5)
  1. CIPROFLOXACIN [Suspect]
     Indication: ENTEROBACTER INFECTION
  2. CIPROFLOXACIN [Suspect]
     Indication: SPUTUM CULTURE POSITIVE
  3. B-LACTAMUS (ANTIBIOTICS) (B-LACTAMS) [Suspect]
     Indication: ENTEROBACTER INFECTION
  4. B-LACTAMUS (ANTIBIOTICS) (B-LACTAMS) [Suspect]
     Indication: SPUTUM CULTURE POSITIVE
  5. ANTIBIOTICS(ANTIBIOTICS) (ANTIBIOTICS) [Concomitant]

REACTIONS (10)
  - ACTIVATED PARTIAL THROMBOPLASTIN TIME PROLONGED [None]
  - COAGULATION FACTOR IX LEVEL DECREASED [None]
  - COAGULATION FACTOR VII LEVEL DECREASED [None]
  - COAGULATION FACTOR VIII LEVEL DECREASED [None]
  - COAGULATION FACTOR X LEVEL DECREASED [None]
  - COAGULATION FACTOR XI LEVEL DECREASED [None]
  - COAGULATION FACTOR XII LEVEL DECREASED [None]
  - FACTOR V INHIBITION [None]
  - PROTHROMBIN LEVEL DECREASED [None]
  - PROTHROMBIN TIME PROLONGED [None]
